FAERS Safety Report 21232936 (Version 1)
Quarter: 2022Q3

REPORT INFORMATION
  Report Type: Spontaneous
  Country: US (occurrence: US)
  Receive Date: 20220819
  Receipt Date: 20220819
  Transmission Date: 20221026
  Serious: No
  Sender: FDA-Public Use
  Company Number: US-PFIZER INC-PV202200046297

PATIENT
  Age: 51 Year
  Sex: Female

DRUGS (7)
  1. IBRANCE [Suspect]
     Active Substance: PALBOCICLIB
     Indication: Breast cancer female
     Dosage: 125 MG, DAILY (TAKE 1 TABLET (125 MG) BY MOUTH DAILY ON DAYS 1-21 OF 28 DAY CYCLE)
     Route: 048
     Dates: start: 20220806
  2. ANASTROZOLE [Concomitant]
     Active Substance: ANASTROZOLE
     Dosage: 1 MG
  3. GABAPENTIN [Concomitant]
     Active Substance: GABAPENTIN
     Dosage: 300 MG
  4. HYDROXOCOBALAMIN HYDROCHLORIDE [Concomitant]
     Active Substance: HYDROXOCOBALAMIN HYDROCHLORIDE
  5. METFORMIN [Concomitant]
     Active Substance: METFORMIN HYDROCHLORIDE
     Dosage: 500 MG
  6. ONDANSETRON [Concomitant]
     Active Substance: ONDANSETRON
     Dosage: 4 MG
  7. SINGULAIR [Concomitant]
     Active Substance: MONTELUKAST SODIUM
     Dosage: 10 MG

REACTIONS (3)
  - Fatigue [Unknown]
  - Diarrhoea [Unknown]
  - Nausea [Unknown]
